FAERS Safety Report 21974918 (Version 1)
Quarter: 2023Q1

REPORT INFORMATION
  Report Type: Spontaneous
  Country: US (occurrence: US)
  Receive Date: 20230209
  Receipt Date: 20230209
  Transmission Date: 20230417
  Serious: Yes (Hospitalization)
  Sender: FDA-Public Use
  Company Number: US-ELI_LILLY_AND_COMPANY-US202302002245

PATIENT
  Age: 48 Year
  Sex: Female
  Weight: 146 kg

DRUGS (10)
  1. ADCIRCA [Suspect]
     Active Substance: TADALAFIL
     Indication: Product used for unknown indication
     Dosage: UNK, UNKNOWN
     Route: 065
     Dates: start: 2022
  2. AMBRISENTAN [Suspect]
     Active Substance: AMBRISENTAN
     Indication: Pulmonary arterial hypertension
     Dosage: UNK, UNKNOWN
     Route: 065
     Dates: start: 202212
  3. REMODULIN [Suspect]
     Active Substance: TREPROSTINIL
     Indication: Pulmonary arterial hypertension
     Dosage: 0.015 UG/KG, UNKNOWN
     Route: 041
     Dates: start: 20221129
  4. REMODULIN [Suspect]
     Active Substance: TREPROSTINIL
     Dosage: 0.002 UG/KG, UNKNOWN
     Route: 041
     Dates: start: 202211
  5. REMODULIN [Suspect]
     Active Substance: TREPROSTINIL
     Dosage: 0.019 UG/KG, UNKNOWN
     Route: 041
     Dates: start: 2022
  6. REMODULIN [Suspect]
     Active Substance: TREPROSTINIL
     Dosage: 0.021 UG/KG, UNKNOWN
     Route: 041
     Dates: start: 20221216
  7. REMODULIN [Suspect]
     Active Substance: TREPROSTINIL
     Dosage: 0.022 UG/KG, UNKNOWN
     Route: 041
     Dates: start: 20221216
  8. REMODULIN [Suspect]
     Active Substance: TREPROSTINIL
     Dosage: 0.023 UG/KG, UNKNOWN
     Route: 041
     Dates: start: 20221220
  9. REMODULIN [Suspect]
     Active Substance: TREPROSTINIL
     Dosage: 0.024 UG/KG, UNKNOWN
     Route: 041
     Dates: start: 2022
  10. REMODULIN [Suspect]
     Active Substance: TREPROSTINIL
     Dosage: 0.026 UG/KG, UNKNOWN
     Route: 041
     Dates: start: 20230101

REACTIONS (11)
  - Tachycardia [Not Recovered/Not Resolved]
  - Pain in jaw [Recovered/Resolved]
  - Headache [Not Recovered/Not Resolved]
  - Flushing [Not Recovered/Not Resolved]
  - Pain in extremity [Recovered/Resolved]
  - Nausea [Not Recovered/Not Resolved]
  - Vomiting [Recovered/Resolved]
  - Dizziness [Recovered/Resolved]
  - Fatigue [Not Recovered/Not Resolved]
  - Dyspnoea [Not Recovered/Not Resolved]
  - Oedema peripheral [Unknown]

NARRATIVE: CASE EVENT DATE: 20220101
